FAERS Safety Report 7387832-5 (Version None)
Quarter: 2011Q1

REPORT INFORMATION
  Report Type: 
  Country: None (occurrence: None)
  Receive Date: 20110331
  Receipt Date: 20110323
  Transmission Date: 20110831
  Serious: Yes (Disabling)
  Sender: FDA-Public Use
  Company Number: US-MERCK-1103USA03206

PATIENT
  Age: 75 Year
  Sex: Female

DRUGS (3)
  1. FOSAMAX [Suspect]
     Route: 048
     Dates: start: 19980101, end: 20100101
  2. ALENDRONATE SODIUM [Suspect]
     Route: 048
     Dates: start: 20080101, end: 20100101
  3. FOSAMAX [Suspect]
     Route: 048
     Dates: start: 20080101, end: 20100101

REACTIONS (4)
  - LOW TURNOVER OSTEOPATHY [None]
  - STRESS FRACTURE [None]
  - OSTEOPOROSIS [None]
  - FEMUR FRACTURE [None]
